FAERS Safety Report 8090277-6 (Version None)
Quarter: 2012Q1

REPORT INFORMATION
  Report Type: 
  Country: None (occurrence: None)
  Receive Date: 20120129
  Receipt Date: 20111208
  Transmission Date: 20120608
  Serious: No
  Sender: FDA-Public Use
  Company Number: US-ABBOTT-11P-163-0873418-00

PATIENT
  Sex: Female
  Weight: 67.646 kg

DRUGS (4)
  1. ALDARA [Concomitant]
     Indication: PRODUCT USED FOR UNKNOWN INDICATION
  2. LEXAPRO [Concomitant]
     Indication: PRODUCT USED FOR UNKNOWN INDICATION
  3. HUMIRA [Suspect]
     Indication: CROHN'S DISEASE
  4. PROAIR HFA [Concomitant]
     Indication: PRODUCT USED FOR UNKNOWN INDICATION
     Dosage: HSA 90 MCG

REACTIONS (5)
  - PIGMENTATION DISORDER [None]
  - ARTHRALGIA [None]
  - NEOPLASM MALIGNANT [None]
  - MYALGIA [None]
  - FATIGUE [None]
